FAERS Safety Report 24899782 (Version 1)
Quarter: 2025Q1

REPORT INFORMATION
  Report Type: Spontaneous
  Country: US (occurrence: US)
  Receive Date: 20250129
  Receipt Date: 20250129
  Transmission Date: 20250409
  Serious: No
  Sender: GRIFOLS
  Company Number: US-IGSA-BIG0032689

PATIENT
  Age: 67 Year
  Sex: Male

DRUGS (9)
  1. XEMBIFY [Suspect]
     Active Substance: HUMAN IMMUNOGLOBULIN G
     Indication: Immunodeficiency common variable
     Dosage: 16 GRAM, Q.WK.
     Route: 058
     Dates: start: 20250112, end: 20250112
  2. XEMBIFY [Suspect]
     Active Substance: HUMAN IMMUNOGLOBULIN G
     Dosage: 16 GRAM, Q.WK.
     Route: 058
     Dates: start: 20250112, end: 20250112
  3. XEMBIFY [Suspect]
     Active Substance: HUMAN IMMUNOGLOBULIN G
     Dosage: 16 UNK
     Route: 058
     Dates: start: 20250112, end: 20250112
  4. XEMBIFY [Suspect]
     Active Substance: HUMAN IMMUNOGLOBULIN G
     Dosage: 16 UNK
     Route: 058
     Dates: start: 202403
  5. BENADRYL [Concomitant]
     Active Substance: DIPHENHYDRAMINE HYDROCHLORIDE
     Indication: Premedication
     Dates: start: 20250112, end: 20250112
  6. TYLENOL [Concomitant]
     Active Substance: ACETAMINOPHEN
     Indication: Premedication
     Dates: start: 20250112, end: 20250112
  7. AMLODIPINE [Concomitant]
     Active Substance: AMLODIPINE BESYLATE
  8. AVAPRO [Concomitant]
     Active Substance: IRBESARTAN
  9. VITAMINS NOS [Concomitant]
     Active Substance: VITAMINS

REACTIONS (6)
  - Incorrect product administration duration [Recovering/Resolving]
  - Infusion site swelling [Recovering/Resolving]
  - Infusion site pain [Recovering/Resolving]
  - Infusion site discolouration [Recovering/Resolving]
  - Infusion site erythema [Recovering/Resolving]
  - Infusion site irritation [Recovering/Resolving]

NARRATIVE: CASE EVENT DATE: 20250112
